FAERS Safety Report 6871620 (Version 1)
Quarter: 2020Q3

REPORT INFORMATION
  Report Type: Report from Study
  Country: US (occurrence: US)
  Receive Date: 20090102
  Receipt Date: 20090102
  Transmission Date: 20201104
  Serious: Yes (Hospitalization, Other)
  Sender: FDA-Public Use
  Company Number: US-ROCHE-604036

PATIENT
  Age: 70 Year
  Sex: Female

DRUGS (1)
  1. IBANDRONIC ACID. [Suspect]
     Active Substance: IBANDRONIC ACID
     Indication: OSTEOPOROSIS
     Route: 065
     Dates: start: 2005

REACTIONS (2)
  - Pyoderma gangrenosum [Recovering/Resolving]
  - Non-Hodgkin^s lymphoma [Not Recovered/Not Resolved]
